FAERS Safety Report 20382411 (Version 1)
Quarter: 2022Q1

REPORT INFORMATION
  Report Type: Spontaneous
  Country: US (occurrence: None)
  Receive Date: 20220127
  Receipt Date: 20220127
  Transmission Date: 20220423
  Serious: Yes (Hospitalization)
  Sender: FDA-Public Use
  Company Number: None

PATIENT
  Age: 70 Year
  Sex: Male
  Weight: 93 kg

DRUGS (2)
  1. SOTROVIMAB [Suspect]
     Active Substance: SOTROVIMAB
     Indication: Upper respiratory tract infection
     Dosage: FREQUENCY : ONCE;?
     Route: 042
     Dates: start: 20220120, end: 20220120
  2. SOTROVIMAB [Suspect]
     Active Substance: SOTROVIMAB
     Indication: COVID-19

REACTIONS (9)
  - Pyrexia [None]
  - Chills [None]
  - Vomiting [None]
  - Diarrhoea [None]
  - Tremor [None]
  - Renal impairment [None]
  - Infusion related reaction [None]
  - COVID-19 [None]
  - Disease progression [None]

NARRATIVE: CASE EVENT DATE: 20220120
